FAERS Safety Report 5473355-7 (Version None)
Quarter: 2007Q3

REPORT INFORMATION
  Report Type: 
  Country: None (occurrence: None)
  Receive Date: 20070824
  Receipt Date: 20070507
  Transmission Date: 20080115
  Serious: Yes (Other)
  Sender: FDA-Public Use
  Company Number: WAES 0704USA03484

PATIENT
  Age: 65 Year
  Sex: Male
  Weight: 86.1834 kg

DRUGS (4)
  1. VYTORIN [Suspect]
     Indication: HYPERCHOLESTEROLAEMIA
     Dosage: 10-10 MG/DAILY/PO
     Route: 048
     Dates: start: 20070226, end: 20070315
  2. VYTORIN [Suspect]
     Indication: LOW DENSITY LIPOPROTEIN
     Dosage: 10-10 MG/DAILY/PO
     Route: 048
     Dates: start: 20070226, end: 20070315
  3. PRINIVIL [Concomitant]
  4. ZETIA [Concomitant]

REACTIONS (2)
  - PRURITUS [None]
  - RASH [None]
